FAERS Safety Report 6932694-0 (Version None)
Quarter: 2010Q3

REPORT INFORMATION
  Report Type: 
  Country: None (occurrence: None)
  Receive Date: 20100819
  Receipt Date: 20100811
  Transmission Date: 20110219
  Serious: Yes (Hospitalization)
  Sender: FDA-Public Use
  Company Number: US-US-EMD SERONO, INC.-7013984

PATIENT
  Sex: Female
  Weight: 51 kg

DRUGS (2)
  1. REBIF [Suspect]
     Indication: MULTIPLE SCLEROSIS
     Route: 058
     Dates: start: 20091001, end: 20100714
  2. UNSPECIFIED MEDICATIONS [Concomitant]

REACTIONS (4)
  - BLOOD ELECTROLYTES DECREASED [None]
  - BLOOD SODIUM DECREASED [None]
  - MULTIPLE SCLEROSIS RELAPSE [None]
  - VASCULAR RUPTURE [None]
